FAERS Safety Report 7962635-9 (Version None)
Quarter: 2011Q4

REPORT INFORMATION
  Report Type: 
  Country: None (occurrence: None)
  Receive Date: 20111207
  Receipt Date: 20111127
  Transmission Date: 20120403
  Serious: Yes (Hospitalization, Other)
  Sender: FDA-Public Use
  Company Number: SK-ABBOTT-11P-260-0867437-00

PATIENT
  Sex: Male
  Weight: 72 kg

DRUGS (4)
  1. HUMIRA [Suspect]
     Dosage: WEEK 2
     Route: 058
     Dates: end: 20091229
  2. COMMERCIAL HUMIRA [Concomitant]
     Indication: CROHN'S DISEASE
     Dates: start: 20090601
  3. HUMIRA [Suspect]
     Indication: CROHN'S DISEASE
     Dosage: BASELINE
     Route: 058
     Dates: start: 20090615, end: 20090615
  4. HUMIRA [Suspect]
     Route: 058
     Dates: start: 20100323

REACTIONS (3)
  - ORCHITIS [None]
  - ILEECTOMY [None]
  - ILEAL STENOSIS [None]
